FAERS Safety Report 6788307-4 (Version None)
Quarter: 2010Q2

REPORT INFORMATION
  Report Type: 
  Country: None (occurrence: None)
  Receive Date: 20100623
  Receipt Date: 20080428
  Transmission Date: 20101027
  Serious: Yes (Other)
  Sender: FDA-Public Use
  Company Number: US-PFIZER INC-2008007911

PATIENT
  Sex: Male
  Weight: 76.2 kg

DRUGS (5)
  1. GEODON [Suspect]
     Indication: BIPOLAR DISORDER
     Dates: start: 20080101
  2. FOCALIN [Suspect]
     Indication: ASPERGER'S DISORDER
     Dates: start: 20071107, end: 20080116
  3. FOCALIN [Suspect]
     Indication: ATTENTION DEFICIT/HYPERACTIVITY DISORDER
  4. NEURONTIN [Concomitant]
  5. ZOLOFT [Concomitant]

REACTIONS (4)
  - DECREASED APPETITE [None]
  - MANIA [None]
  - NAUSEA [None]
  - WEIGHT DECREASED [None]
